FAERS Safety Report 9160954 (Version 1)
Quarter: 2013Q1

REPORT INFORMATION
  Report Type: Spontaneous
  Country: US (occurrence: US)
  Receive Date: 20130313
  Receipt Date: 20130313
  Transmission Date: 20140127
  Serious: Yes (Hospitalization)
  Sender: FDA-Public Use
  Company Number: US-PFIZER INC-2013084392

PATIENT
  Age: 86 Year
  Sex: Female

DRUGS (7)
  1. TIKOSYN [Suspect]
     Indication: ATRIAL FIBRILLATION
     Dosage: 0.25 MG, 2X/DAY
     Dates: start: 20130201, end: 20130304
  2. DILTIAZEM HCL [Suspect]
     Indication: ATRIAL FIBRILLATION
     Dosage: 240 MG, 1X/DAY
     Route: 048
  3. DILTIAZEM HCL [Suspect]
     Dosage: 360 MG, 1X/DAY
     Route: 048
  4. DILTIAZEM HCL [Suspect]
     Dosage: UNK
     Route: 048
  5. DIGOXIN [Suspect]
     Indication: ATRIAL FIBRILLATION
     Dosage: UNK
  6. PREDNISONE [Concomitant]
     Indication: MYALGIA
     Dosage: 20 MG, 1X/DAY
     Dates: start: 201209
  7. PREDNISONE [Concomitant]
     Dosage: 8 MG, 1X/DAY

REACTIONS (1)
  - Tachycardia [Unknown]
